FAERS Safety Report 5773638-7 (Version None)
Quarter: 2008Q2

REPORT INFORMATION
  Report Type: 
  Country: None (occurrence: None)
  Receive Date: 20080616
  Receipt Date: 20080605
  Transmission Date: 20081010
  Serious: Yes (Other)
  Sender: FDA-Public Use
  Company Number: US-JNJFOC-20080602132

PATIENT
  Sex: Female
  Weight: 80.74 kg

DRUGS (13)
  1. DURAGESIC-100 [Suspect]
     Route: 062
  2. DURAGESIC-100 [Suspect]
     Route: 062
  3. DURAGESIC-100 [Suspect]
     Indication: PROCEDURAL PAIN
     Route: 062
  4. DURAGESIC-100 [Suspect]
     Indication: BACK PAIN
     Route: 062
  5. TOPROL-XL [Suspect]
     Indication: BLOOD PRESSURE
     Route: 048
  6. PERCOCET (GENERIC) [Suspect]
     Indication: PAIN
     Route: 048
  7. PERCOCET [Concomitant]
     Indication: BACK PAIN
     Route: 048
  8. SYNTHROID [Concomitant]
     Indication: THYROID DISORDER
     Route: 048
  9. PREVACID [Concomitant]
     Indication: GASTROOESOPHAGEAL REFLUX DISEASE
     Route: 048
  10. PYRIDIUM [Concomitant]
     Indication: URINARY TRACT DISORDER
     Route: 048
  11. CLARINEX [Concomitant]
     Indication: SEASONAL ALLERGY
     Route: 048
  12. EYE MEDICATION [Concomitant]
     Indication: EYE DISORDER
     Route: 047
  13. EAR MEDICATION [Concomitant]
     Indication: EAR DISORDER

REACTIONS (11)
  - BLOOD TRIGLYCERIDES INCREASED [None]
  - BREAKTHROUGH PAIN [None]
  - DRUG ADMINISTERED AT INAPPROPRIATE SITE [None]
  - DRUG ADMINISTRATION ERROR [None]
  - GAIT DISTURBANCE [None]
  - HYPERTENSION [None]
  - INAPPROPRIATE SCHEDULE OF DRUG ADMINISTRATION [None]
  - OFF LABEL USE [None]
  - PAIN [None]
  - THERAPEUTIC RESPONSE DECREASED [None]
  - URINARY TRACT DISORDER [None]
